FAERS Safety Report 9629940 (Version 1)
Quarter: 2013Q4

REPORT INFORMATION
  Report Type: Spontaneous
  Country: US (occurrence: US)
  Receive Date: 20131017
  Receipt Date: 20131017
  Transmission Date: 20140711
  Serious: Yes (Hospitalization)
  Sender: FDA-Public Use
  Company Number: US-ASTRAZENECA-2013SE75135

PATIENT
  Age: 78 Year
  Sex: Female
  Weight: 55.8 kg

DRUGS (4)
  1. SYMBICORT [Suspect]
     Indication: CHRONIC OBSTRUCTIVE PULMONARY DISEASE
     Dosage: 160/4.5, 2 PUFFS BID
     Route: 055
     Dates: end: 2013
  2. SYMBICORT [Suspect]
     Indication: DYSPNOEA
     Dosage: 160/4.5, 2 PUFFS BID
     Route: 055
     Dates: end: 2013
  3. MEDICATION IN A RED BOX [Concomitant]
  4. SUBSTITUTE OF SYMBICORT [Concomitant]

REACTIONS (7)
  - Gait disturbance [Unknown]
  - Dyspnoea [Unknown]
  - Malaise [Unknown]
  - Drug ineffective [Unknown]
  - Condition aggravated [Unknown]
  - Off label use [Unknown]
  - Drug dose omission [Unknown]
